FAERS Safety Report 4663005-1 (Version None)
Quarter: 2005Q2

REPORT INFORMATION
  Report Type: 
  Country: None (occurrence: None)
  Receive Date: 20050511
  Receipt Date: 20040721
  Transmission Date: 20051028
  Serious: No
  Sender: FDA-Public Use
  Company Number: ZONI001472

PATIENT
  Sex: Male

DRUGS (7)
  1. ZONEGRAN [Suspect]
     Indication: ESSENTIAL TREMOR
     Dosage: 50 MG, 1 IN 1 D, ORAL
     Route: 048
     Dates: start: 20040101, end: 20040101
  2. PLAVIX [Concomitant]
  3. LIPITOR [Concomitant]
  4. ACIPHEX [Concomitant]
  5. AVAPRO [Concomitant]
  6. PAXIL [Concomitant]
  7. VITAMIN E [Concomitant]

REACTIONS (1)
  - OEDEMA PERIPHERAL [None]
